FAERS Safety Report 13821450 (Version 1)
Quarter: 2017Q3

REPORT INFORMATION
  Report Type: Spontaneous
  Country: CH (occurrence: CH)
  Receive Date: 20170801
  Receipt Date: 20170801
  Transmission Date: 20171127
  Serious: Yes (Hospitalization)
  Sender: FDA-Public Use
  Company Number: CH-009507513-1707CHE009425

PATIENT
  Age: 67 Year
  Sex: Female

DRUGS (7)
  1. STILNOX [Concomitant]
     Active Substance: ZOLPIDEM TARTRATE
     Dosage: 10 MG, QD
     Route: 048
  2. REMERON SOLTAB [Suspect]
     Active Substance: MIRTAZAPINE
     Route: 048
  3. LEXOTANIL [Suspect]
     Active Substance: BROMAZEPAM
     Dosage: 1.5 MG, QD
     Route: 048
  4. KEPPRA [Concomitant]
     Active Substance: LEVETIRACETAM
     Dosage: 500 MG, BID
     Route: 048
  5. DISTRANEURIN [Concomitant]
     Active Substance: CLOMETHIAZOLE
     Dosage: 192 MG, QD
     Route: 048
  6. TEMESTA EXPIDET [Suspect]
     Active Substance: LORAZEPAM
     Route: 048
  7. REMERON SOLTAB [Suspect]
     Active Substance: MIRTAZAPINE
     Route: 048
     Dates: end: 20170713

REACTIONS (7)
  - Malaise [Recovering/Resolving]
  - Intentional product misuse [Recovered/Resolved]
  - Hyponatraemia [Recovered/Resolved]
  - Asthenia [Recovering/Resolving]
  - Electrocardiogram QT prolonged [Recovered/Resolved]
  - Presyncope [Recovering/Resolving]
  - Appetite disorder [Recovering/Resolving]

NARRATIVE: CASE EVENT DATE: 2017
